FAERS Safety Report 7766573-6 (Version None)
Quarter: 2011Q3

REPORT INFORMATION
  Report Type: 
  Country: None (occurrence: None)
  Receive Date: 20110922
  Receipt Date: 20100216
  Transmission Date: 20111222
  Serious: No
  Sender: FDA-Public Use
  Company Number: 2010BI005405

PATIENT
  Sex: Female

DRUGS (1)
  1. TYSABRI [Suspect]
     Indication: MULTIPLE SCLEROSIS
     Route: 042
     Dates: start: 20070215

REACTIONS (16)
  - DYSPNOEA [None]
  - GENERAL SYMPTOM [None]
  - WEIGHT INCREASED [None]
  - BALANCE DISORDER [None]
  - APHASIA [None]
  - NASOPHARYNGITIS [None]
  - MEMORY IMPAIRMENT [None]
  - MOBILITY DECREASED [None]
  - FRUSTRATION [None]
  - GAIT DISTURBANCE [None]
  - HYPERAESTHESIA [None]
  - ASTHENIA [None]
  - MULTIPLE ALLERGIES [None]
  - VERTIGO [None]
  - SPEECH DISORDER [None]
  - FATIGUE [None]
